FAERS Safety Report 7737808-0 (Version None)
Quarter: 2011Q3

REPORT INFORMATION
  Report Type: 
  Country: None (occurrence: None)
  Receive Date: 20110908
  Receipt Date: 20110826
  Transmission Date: 20111222
  Serious: Yes (Death, Hospitalization)
  Sender: FDA-Public Use
  Company Number: PHHO2010US12901

PATIENT
  Sex: Female
  Weight: 53 kg

DRUGS (2)
  1. DOCETAXEL [Suspect]
     Dosage: UNK
     Dates: start: 20100616, end: 20100728
  2. ASA404 [Suspect]
     Indication: NON-SMALL CELL LUNG CANCER METASTATIC
     Dosage: UNK
     Route: 042
     Dates: start: 20100616

REACTIONS (2)
  - BASAL GANGLIA HAEMORRHAGE [None]
  - SUBDURAL HAEMATOMA [None]
